FAERS Safety Report 8976359 (Version 3)
Quarter: 2014Q1

REPORT INFORMATION
  Report Type: Spontaneous
  Country: US (occurrence: US)
  Receive Date: 20121220
  Receipt Date: 20140224
  Transmission Date: 20141002
  Serious: Yes (Hospitalization, Other)
  Sender: FDA-Public Use
  Company Number: US-BRISTOL-MYERS SQUIBB COMPANY-17205691

PATIENT
  Age: 84 Year
  Sex: Female
  Weight: 62.13 kg

DRUGS (4)
  1. COUMADIN TABS [Suspect]
     Indication: THROMBOSIS
     Dosage: ALSO RECEIVED 1MG AND 3 MG.
     Route: 048
     Dates: start: 201209
  2. RYTHMOL [Concomitant]
  3. LIPITOR [Concomitant]
  4. METOPROLOL [Concomitant]

REACTIONS (6)
  - Atrial fibrillation [Unknown]
  - Pneumonia [Unknown]
  - International normalised ratio fluctuation [Recovered/Resolved]
  - Rash pruritic [Unknown]
  - Diarrhoea [Unknown]
  - Infrequent bowel movements [Unknown]
